FAERS Safety Report 15435503 (Version 1)
Quarter: 2018Q4

REPORT INFORMATION
  Report Type: Spontaneous
  Country: FR (occurrence: FR)
  Receive Date: 20180927
  Receipt Date: 20180927
  Transmission Date: 20190204
  Serious: Yes (Other)
  Sender: FDA-Public Use
  Company Number: FR-MYLANLABS-2018M1070204

PATIENT
  Age: 53 Year
  Sex: Female

DRUGS (8)
  1. PIPERACILLIN/TAZOBACTAM [Suspect]
     Active Substance: PIPERACILLIN SODIUM\TAZOBACTAM SODIUM
     Indication: STENOTROPHOMONAS INFECTION
  2. AMIKACIN. [Suspect]
     Active Substance: AMIKACIN
     Indication: STENOTROPHOMONAS INFECTION
     Dosage: UNK
  3. PIPERACILLIN/TAZOBACTAM [Suspect]
     Active Substance: PIPERACILLIN SODIUM\TAZOBACTAM SODIUM
     Indication: ENTEROBACTER INFECTION
     Dosage: UNK
  4. AMPHOTERICIN B. [Suspect]
     Active Substance: AMPHOTERICIN B
     Indication: ASPERGILLUS INFECTION
     Dosage: UNK
  5. VORICONAZOLE. [Suspect]
     Active Substance: VORICONAZOLE
     Indication: ASPERGILLUS INFECTION
     Dosage: UNK
  6. MAFENIDE. [Suspect]
     Active Substance: MAFENIDE
     Indication: ENTEROBACTER INFECTION
     Dosage: UNK
  7. AMIKACIN. [Suspect]
     Active Substance: AMIKACIN
     Indication: ENTEROBACTER INFECTION
     Dosage: UNK
  8. MAFENIDE. [Suspect]
     Active Substance: MAFENIDE
     Indication: STENOTROPHOMONAS INFECTION

REACTIONS (1)
  - Multiple organ dysfunction syndrome [Unknown]
